FAERS Safety Report 22769348 (Version 3)
Quarter: 2023Q4

REPORT INFORMATION
  Report Type: Spontaneous
  Country: US (occurrence: US)
  Receive Date: 20230731
  Receipt Date: 20231009
  Transmission Date: 20240110
  Serious: Yes (Hospitalization, Other)
  Sender: FDA-Public Use
  Company Number: US-BRISTOL-MYERS SQUIBB COMPANY-2023-107040

PATIENT
  Age: 88 Year
  Sex: Female
  Weight: 83.01 kg

DRUGS (1)
  1. REVLIMID [Suspect]
     Active Substance: LENALIDOMIDE
     Indication: Plasma cell myeloma
     Dosage: 14D OF 21DAYS (2 WKS ON,1 WK OFF)
     Route: 048
     Dates: start: 20230526

REACTIONS (4)
  - Faecaloma [Recovering/Resolving]
  - Off label use [Unknown]
  - Decreased appetite [Not Recovered/Not Resolved]
  - Taste disorder [Not Recovered/Not Resolved]
